FAERS Safety Report 19772181 (Version 2)
Quarter: 2022Q1

REPORT INFORMATION
  Report Type: Report from Study
  Country: CA (occurrence: CA)
  Receive Date: 20210901
  Receipt Date: 20220309
  Transmission Date: 20220424
  Serious: Yes (Hospitalization, Other)
  Sender: FDA-Public Use
  Company Number: CA-PFIZER INC-202101075167

PATIENT
  Age: 81 Year
  Sex: Male

DRUGS (39)
  1. RITUXIMAB [Suspect]
     Active Substance: RITUXIMAB
     Indication: Rheumatoid arthritis
     Dosage: 1000 MG, CYCLIC (1 EVERY 2 WEEKS)
     Route: 041
  2. ACTEMRA [Suspect]
     Active Substance: TOCILIZUMAB
     Indication: Rheumatoid arthritis
     Dosage: 400 MG
     Route: 042
  3. CANDESARTAN [Suspect]
     Active Substance: CANDESARTAN
     Route: 048
  4. FUROSEMIDE [Suspect]
     Active Substance: FUROSEMIDE
     Dosage: 60 MG
     Route: 065
  5. NITROFURANTOIN [Suspect]
     Active Substance: NITROFURANTOIN
     Dosage: UNK
     Route: 065
  6. BENDAMUSTINE [Suspect]
     Active Substance: BENDAMUSTINE
     Indication: Rheumatoid arthritis
     Dosage: UNK
  7. BENDAMUSTINE [Suspect]
     Active Substance: BENDAMUSTINE
     Dosage: 1000 MG 1 EVERY 2 WEEKS
     Route: 041
  8. ACETAMINOPHEN [Concomitant]
     Active Substance: ACETAMINOPHEN
     Indication: Premedication
     Dosage: 650 MG
     Route: 048
  9. APIXABAN [Concomitant]
     Active Substance: APIXABAN
     Route: 065
  10. ASPIRIN [Concomitant]
     Active Substance: ASPIRIN
     Indication: Premedication
     Route: 048
  11. BENADRYL [Concomitant]
     Active Substance: DIPHENHYDRAMINE HYDROCHLORIDE
     Indication: Premedication
     Dosage: 50 MG
     Route: 048
  12. BETAHISTINE HYDROCHLORIDE [Concomitant]
     Active Substance: BETAHISTINE HYDROCHLORIDE
     Route: 065
  13. BICALUTAMIDE [Concomitant]
     Active Substance: BICALUTAMIDE
     Route: 065
  14. BISOPROLOL [Concomitant]
     Active Substance: BISOPROLOL
     Route: 065
  15. BRILINTA [Concomitant]
     Active Substance: TICAGRELOR
     Route: 065
  16. CLOPIDOGREL [Concomitant]
     Active Substance: CLOPIDOGREL BISULFATE
     Route: 065
  17. EFUDEX [Concomitant]
     Active Substance: FLUOROURACIL
     Route: 065
  18. HYDROXYCHLOROQUINE [Concomitant]
     Active Substance: HYDROXYCHLOROQUINE
     Route: 065
  19. HYDROXYCHLOROQUINE SULFATE [Concomitant]
     Active Substance: HYDROXYCHLOROQUINE SULFATE
     Route: 065
  20. KETOPROFEN [Concomitant]
     Active Substance: KETOPROFEN
     Route: 065
  21. METOPROLOL [Concomitant]
     Active Substance: METOPROLOL
     Dosage: UNK
     Route: 065
  22. METOPROLOL [Concomitant]
     Active Substance: METOPROLOL
     Dosage: UNK
     Route: 065
  23. NITROGLYCERIN [Concomitant]
     Active Substance: NITROGLYCERIN
     Route: 065
  24. PANTOPRAZOLE MAGNESIUM [Concomitant]
     Active Substance: PANTOPRAZOLE MAGNESIUM
     Route: 065
  25. FERRIC POLYSACCHARIDE COMPLEX [Concomitant]
     Active Substance: FERRIC POLYSACCHARIDE COMPLEX
     Route: 065
  26. POTASSIUM [Concomitant]
     Active Substance: POTASSIUM
     Route: 065
  27. RABEPRAZOLE [Concomitant]
     Active Substance: RABEPRAZOLE
     Route: 065
  28. RABEPRAZOLE [Concomitant]
     Active Substance: RABEPRAZOLE
     Dosage: UNK
     Route: 065
  29. ROSUVASTATIN [Concomitant]
     Active Substance: ROSUVASTATIN
     Route: 065
  30. ROSUVASTATIN CALCIUM [Concomitant]
     Active Substance: ROSUVASTATIN CALCIUM
     Dosage: UNK
     Route: 065
  31. ROSUVASTATIN CALCIUM [Concomitant]
     Active Substance: ROSUVASTATIN CALCIUM
     Dosage: UNK
     Route: 065
  32. SULFASALAZINE [Concomitant]
     Active Substance: SULFASALAZINE
     Route: 065
  33. ZOLADEX [Concomitant]
     Active Substance: GOSERELIN ACETATE
     Route: 065
  34. BISOPROLOL [Concomitant]
     Active Substance: BISOPROLOL
     Indication: Myocardial infarction
     Dosage: UNK
  35. CLOPIDOGREL BISULFATE [Concomitant]
     Active Substance: CLOPIDOGREL BISULFATE
     Dosage: UNK
  36. CYTARABINE [Suspect]
     Active Substance: CYTARABINE
  37. CYTARABINE [Suspect]
     Active Substance: CYTARABINE
  38. RITUXIMAB [Suspect]
     Active Substance: RITUXIMAB
  39. RITUXIMAB [Suspect]
     Active Substance: RITUXIMAB

REACTIONS (7)
  - Atrial fibrillation [Unknown]
  - Blood urine present [Unknown]
  - Drug hypersensitivity [Unknown]
  - Fluid retention [Unknown]
  - Heart rate increased [Unknown]
  - Hypotension [Unknown]
  - Myocardial infarction [Unknown]
